FAERS Safety Report 5574739-9 (Version None)
Quarter: 2007Q4

REPORT INFORMATION
  Report Type: 
  Country: None (occurrence: None)
  Receive Date: 20071130
  Receipt Date: 20070905
  Transmission Date: 20080405
  Serious: No
  Sender: FDA-Public Use
  Company Number: US200708003713

PATIENT
  Age: 53 Year
  Sex: Male
  Weight: 156.5 kg

DRUGS (7)
  1. BYETTA [Suspect]
     Indication: TYPE 2 DIABETES MELLITUS
     Dosage: 5 UG, 2/D, SUBCUTANEOUS ; 10 UG, 2/D, SUBCUTANEOUS
     Route: 058
     Dates: start: 20050601, end: 20050701
  2. BYETTA [Suspect]
     Indication: TYPE 2 DIABETES MELLITUS
     Dosage: 5 UG, 2/D, SUBCUTANEOUS ; 10 UG, 2/D, SUBCUTANEOUS
     Route: 058
     Dates: start: 20050701
  3. EXENATIDE 10MCG PEN,DISPOSABLE DEVICE (EXENATIDE PEN (10MCG)) PEN,DISP [Concomitant]
  4. METFORMIN HCL [Concomitant]
  5. LEXAPRO [Concomitant]
  6. CRESTOR [Concomitant]
  7. ALTACE [Concomitant]

REACTIONS (3)
  - FEELING ABNORMAL [None]
  - INFLUENZA LIKE ILLNESS [None]
  - WEIGHT DECREASED [None]
